FAERS Safety Report 9659687 (Version 1)
Quarter: 2013Q4

REPORT INFORMATION
  Report Type: Spontaneous
  Country: US (occurrence: None)
  Receive Date: 20131029
  Receipt Date: 20131029
  Transmission Date: 20140711
  Serious: Yes (Other)
  Sender: FDA-Public Use
  Company Number: AUR-APL-2013-08441

PATIENT
  Age: 46 Year
  Sex: Female

DRUGS (5)
  1. AMLODIPINE [Suspect]
     Indication: HYPERTENSION
     Dosage: 5 MG (5 MG, 1 IN 1 D), UNKNOWN
  2. RITONAVIR [Suspect]
     Indication: HIV INFECTION
     Dosage: 100 MG (100 MG, 1 IN 1 D), UNKNOWN
  3. ATAZANAVIR [Suspect]
     Indication: HIV INFECTION
     Dosage: 300MG (300 MG,1 IN 1 D), UNKNOWN
  4. EMTRICITABINE W/ TENOFOVIR (EMTRICITABINE W/ TENOFOVIR) [Concomitant]
  5. IBUPROFEN (IBUPROFEN) [Concomitant]

REACTIONS (2)
  - Gingival hypertrophy [None]
  - Drug interaction [None]
